FAERS Safety Report 5537455-5 (Version None)
Quarter: 2007Q4

REPORT INFORMATION
  Report Type: 
  Country: None (occurrence: None)
  Receive Date: 20071207
  Receipt Date: 20071130
  Transmission Date: 20080405
  Serious: Yes (Hospitalization)
  Sender: FDA-Public Use
  Company Number: US-BRISTOL-MYERS SQUIBB COMPANY-13990726

PATIENT
  Age: 65 Year
  Sex: Male
  Weight: 79 kg

DRUGS (6)
  1. CISPLATIN [Suspect]
     Indication: SQUAMOUS CELL CARCINOMA
     Dates: start: 20071112, end: 20071112
  2. RADIATION THERAPY [Suspect]
     Dates: start: 20071001
  3. LISINOPRIL [Concomitant]
  4. ATIVAN [Concomitant]
  5. FENTANYL TRANSDERMAL SYSTEM [Concomitant]
  6. OXYCODONE HCL [Concomitant]

REACTIONS (8)
  - DEHYDRATION [None]
  - HAEMOGLOBIN DECREASED [None]
  - HYPOTENSION [None]
  - HYPOXIA [None]
  - MUCOSAL INFLAMMATION [None]
  - OESOPHAGITIS [None]
  - PAIN [None]
  - RASH [None]
